FAERS Safety Report 12117655 (Version 1)
Quarter: 2016Q1

REPORT INFORMATION
  Report Type: Report from Study
  Country: US (occurrence: US)
  Receive Date: 20160226
  Receipt Date: 20160226
  Transmission Date: 20160526
  Serious: Yes (Death, Other)
  Sender: FDA-Public Use
  Company Number: US-ROCHE-1240500

PATIENT

DRUGS (3)
  1. CAPECITABINE. [Suspect]
     Active Substance: CAPECITABINE
     Indication: RECTAL CANCER
     Dosage: MONDAY THROUGH FRIDAY FOR 5 WEEKS
     Route: 065
  2. OXALIPLATIN. [Suspect]
     Active Substance: OXALIPLATIN
     Indication: RECTAL CANCER
     Route: 042
  3. CELECOXIB. [Suspect]
     Active Substance: CELECOXIB
     Indication: RECTAL CANCER
     Route: 065

REACTIONS (10)
  - Liver function test abnormal [Unknown]
  - Diarrhoea [Unknown]
  - Nausea [Unknown]
  - Lymphopenia [Unknown]
  - Fatigue [Unknown]
  - Hypokalaemia [Unknown]
  - Infection [Fatal]
  - Dehydration [Unknown]
  - Vomiting [Unknown]
  - Abdominal pain [Unknown]
